FAERS Safety Report 18310925 (Version 1)
Quarter: 2020Q3

REPORT INFORMATION
  Report Type: Report from Study
  Country: NL (occurrence: NL)
  Receive Date: 20200924
  Receipt Date: 20200924
  Transmission Date: 20201103
  Serious: Yes (Death, Hospitalization, Other)
  Sender: FDA-Public Use
  Company Number: NL-BRISTOL-MYERS SQUIBB COMPANY-BMS-2020-073363

PATIENT
  Age: 76 Year
  Sex: Male
  Weight: 64 kg

DRUGS (6)
  1. MITOMYCIN C [Concomitant]
     Active Substance: MITOMYCIN
     Indication: BLADDER CANCER
     Dosage: 21 MILLIGRAM
     Route: 065
     Dates: start: 20200824
  2. IPILIMUMAB [Suspect]
     Active Substance: IPILIMUMAB
     Indication: BLADDER CANCER
     Dosage: 62.5 MILLIGRAM, Q3WK
     Route: 042
     Dates: start: 20200824, end: 20200824
  3. CAPECITABINE. [Suspect]
     Active Substance: CAPECITABINE
     Indication: BLADDER CANCER
     Dosage: 1300 MG DAILY ON WEEKDAYS
     Route: 065
     Dates: start: 20200824, end: 20200907
  4. NIVOLUMAB [Suspect]
     Active Substance: NIVOLUMAB
     Indication: BLADDER CANCER
     Dosage: 185 MILLIGRAM, Q3WK
     Route: 042
     Dates: start: 20200824, end: 20200824
  5. PREDNISONE. [Concomitant]
     Active Substance: PREDNISONE
     Dosage: 10 MILLIGRAM, QD
     Route: 065
  6. PREDNISONE. [Concomitant]
     Active Substance: PREDNISONE
     Indication: POLYARTHRITIS
     Dosage: 5 MILLIGRAM
     Route: 065

REACTIONS (2)
  - Cardiac arrest [Fatal]
  - Hyponatraemia [Recovering/Resolving]

NARRATIVE: CASE EVENT DATE: 20200907
